FAERS Safety Report 13464535 (Version 1)
Quarter: 2017Q2

REPORT INFORMATION
  Report Type: Spontaneous
  Country: US (occurrence: US)
  Receive Date: 20170420
  Receipt Date: 20170420
  Transmission Date: 20170830
  Serious: Yes (Other)
  Sender: FDA-Public Use
  Company Number: US-ROCHE-649884

PATIENT
  Age: 18 Year
  Sex: Male
  Weight: 81.6 kg

DRUGS (4)
  1. ACCUTANE [Suspect]
     Active Substance: ISOTRETINOIN
     Indication: ACNE
     Dosage: AVERAGE DOSE: 60 MG
     Route: 048
     Dates: start: 19980219, end: 199808
  2. ACCUTANE [Suspect]
     Active Substance: ISOTRETINOIN
     Route: 048
     Dates: start: 20000218, end: 20000414
  3. ACCUTANE [Suspect]
     Active Substance: ISOTRETINOIN
     Route: 048
     Dates: start: 20000414, end: 20000630
  4. ACCUTANE [Suspect]
     Active Substance: ISOTRETINOIN
     Route: 048
     Dates: start: 20000107, end: 20000218

REACTIONS (9)
  - Colitis ulcerative [Unknown]
  - Arthralgia [Unknown]
  - Blood alkaline phosphatase increased [Unknown]
  - Aphthous ulcer [Unknown]
  - Eczema asteatotic [Unknown]
  - Inflammatory bowel disease [Unknown]
  - Arthritis [Unknown]
  - Dry skin [Unknown]
  - Depression [Unknown]

NARRATIVE: CASE EVENT DATE: 19980402
